FAERS Safety Report 11946142 (Version 3)
Quarter: 2017Q1

REPORT INFORMATION
  Report Type: Report from Study
  Country: US (occurrence: US)
  Receive Date: 20160125
  Receipt Date: 20170124
  Transmission Date: 20170428
  Serious: No
  Sender: FDA-Public Use
  Company Number: US-AMGEN-USASL2015137423

PATIENT
  Age: 76 Year
  Sex: Female

DRUGS (1)
  1. REPATHA [Suspect]
     Active Substance: EVOLOCUMAB
     Indication: DYSLIPIDAEMIA
     Dosage: 140 MG, Q2WK
     Route: 065
     Dates: start: 20151026

REACTIONS (9)
  - Gait disturbance [Unknown]
  - Back disorder [Unknown]
  - Visual impairment [Unknown]
  - Scratch [Unknown]
  - Back pain [Recovering/Resolving]
  - Tremor [Unknown]
  - Mobility decreased [Unknown]
  - Fall [Unknown]
  - Drug dose omission [Unknown]
